FAERS Safety Report 23827270 (Version 1)
Quarter: 2024Q2

REPORT INFORMATION
  Report Type: Spontaneous
  Country: HR (occurrence: HR)
  Receive Date: 20240507
  Receipt Date: 20240507
  Transmission Date: 20240715
  Serious: Yes (Death, Other)
  Sender: FDA-Public Use
  Company Number: HR-PFIZER INC-202400101168

PATIENT

DRUGS (4)
  1. CYTARABINE [Suspect]
     Active Substance: CYTARABINE
     Indication: Central nervous system lymphoma
     Dosage: 2000 MG/M2 EVERY 12 HOURS ON 3RD DAY OF CYCLE
  2. RITUXIMAB [Suspect]
     Active Substance: RITUXIMAB
     Indication: Central nervous system lymphoma
     Dosage: UNK
  3. METHOTREXATE [Suspect]
     Active Substance: METHOTREXATE
     Dosage: UNK
  4. THIOTEPA [Suspect]
     Active Substance: THIOTEPA
     Dosage: UNK

REACTIONS (3)
  - Neurotoxicity [Fatal]
  - Neutropenia [Unknown]
  - Thrombocytopenia [Unknown]
